FAERS Safety Report 8581059-7 (Version None)
Quarter: 2012Q3

REPORT INFORMATION
  Report Type: 
  Country: None (occurrence: None)
  Receive Date: 20120809
  Receipt Date: 20120727
  Transmission Date: 20120928
  Serious: Yes (Disabling)
  Sender: FDA-Public Use
  Company Number: DE-CELGENEUS-062-21880-12020390

PATIENT
  Age: 68 Year
  Sex: Male
  Weight: 84 kg

DRUGS (16)
  1. TRAMADOL HYDROCHLORIDE [Concomitant]
     Indication: PAROTITIS
  2. TORSEMIDE [Concomitant]
     Indication: OEDEMA
     Route: 065
  3. AMPICILLIN AND SULBACTAM [Concomitant]
     Indication: ANTI-INFECTIVE THERAPY
     Route: 065
  4. PANTOPRAZOLE [Concomitant]
     Indication: ULCER
     Route: 065
  5. AMPHOTERICIN B [Concomitant]
     Route: 048
  6. ACID ACETYLSALICYLIC [Concomitant]
     Dosage: 100
     Route: 048
  7. METOPROLOL TARTRATE [Concomitant]
     Indication: HYPERTENSION
     Route: 048
  8. TRAMADOL HYDROCHLORIDE [Concomitant]
     Indication: PAIN
     Route: 048
  9. REVLIMID [Suspect]
     Indication: MULTIPLE MYELOMA
     Dosage: 10 MILLIGRAM
     Route: 048
     Dates: start: 20120112, end: 20120209
  10. DEXAMETHASONE [Suspect]
     Indication: MULTIPLE MYELOMA
     Dosage: 20 MILLIGRAM
     Dates: start: 20120112, end: 20120203
  11. GLIMEPERAL [Concomitant]
     Indication: DIABETES MELLITUS
     Dosage: .5 MILLIGRAM
     Route: 048
  12. LISINOPRIL [Concomitant]
     Indication: HYPERTENSION
     Route: 048
  13. DICLOFENAC [Concomitant]
     Indication: ANTI-INFECTIVE THERAPY
     Route: 065
  14. METAMINEL [Concomitant]
     Dosage: 30 DROPS
     Route: 048
  15. LEVOFLOXACIN [Concomitant]
     Indication: ANTI-INFECTIVE THERAPY
     Route: 065
  16. LOPERAMIDE [Concomitant]
     Indication: DIARRHOEA
     Route: 065

REACTIONS (2)
  - PAROTITIS [None]
  - PAROTID ABSCESS [None]
